FAERS Safety Report 6570483-X (Version None)
Quarter: 2010Q1

REPORT INFORMATION
  Report Type: 
  Country: None (occurrence: None)
  Receive Date: 20100204
  Receipt Date: 20090914
  Transmission Date: 20100710
  Serious: No
  Sender: FDA-Public Use
  Company Number: A0807271A

PATIENT
  Age: 67 Year
  Sex: Male

DRUGS (8)
  1. ARIXTRA [Suspect]
     Indication: DEEP VEIN THROMBOSIS
     Dosage: 7.5MG PER DAY
     Route: 058
  2. NEURONTIN [Concomitant]
  3. CALCIUM [Concomitant]
  4. CLARITIN [Concomitant]
  5. OMEPRAZOLE [Concomitant]
  6. KLONOPIN [Concomitant]
  7. FLOMAX [Concomitant]
  8. FINASTERIDE [Concomitant]

REACTIONS (1)
  - PARAESTHESIA [None]
